FAERS Safety Report 20663609 (Version 2)
Quarter: 2022Q2

REPORT INFORMATION
  Report Type: Report from Study
  Country: IT (occurrence: IT)
  Receive Date: 20220401
  Receipt Date: 20220406
  Transmission Date: 20220720
  Serious: Yes (Other)
  Sender: FDA-Public Use
  Company Number: IT-ViiV Healthcare Limited-IT2022GSK050097

PATIENT
  Sex: Male

DRUGS (7)
  1. PREZISTA [Suspect]
     Active Substance: DARUNAVIR ETHANOLATE
     Indication: Antiretroviral therapy
     Dosage: UNK UNK, BID
     Route: 065
  2. ENFUVIRTIDE [Suspect]
     Active Substance: ENFUVIRTIDE
     Indication: Antiretroviral therapy
     Dosage: 90 MG, BID
     Route: 042
  3. MARAVIROC [Suspect]
     Active Substance: MARAVIROC
     Indication: Antiretroviral therapy
     Dosage: 300 MG, BID
     Route: 065
  4. RITONAVIR [Suspect]
     Active Substance: RITONAVIR
     Indication: Antiviral treatment
     Dosage: UNK, BID
     Route: 065
  5. DOLUTEGRAVIR [Suspect]
     Active Substance: DOLUTEGRAVIR
     Indication: Antiviral treatment
     Dosage: 50 MG, BID
     Route: 065
  6. FOSTEMSAVIR [Suspect]
     Active Substance: FOSTEMSAVIR
     Indication: Antiviral treatment
     Dosage: 600 MG, BID
     Route: 065
  7. EMTRICITABINE\TENOFOVIR DISOPROXIL FUMARATE [Suspect]
     Active Substance: EMTRICITABINE\TENOFOVIR DISOPROXIL FUMARATE
     Indication: Antiviral treatment
     Dosage: UNK UNK, QD
     Route: 065

REACTIONS (8)
  - Virologic failure [Unknown]
  - Pathogen resistance [Unknown]
  - Drug ineffective [Unknown]
  - Viral mutation identified [Unknown]
  - Drug resistance [Unknown]
  - Treatment noncompliance [Unknown]
  - Blood HIV RNA increased [Recovered/Resolved]
  - Viral mutation identified [Unknown]
